FAERS Safety Report 8433170-9 (Version None)
Quarter: 2012Q2

REPORT INFORMATION
  Report Type: 
  Country: None (occurrence: None)
  Receive Date: 20120613
  Receipt Date: 20120606
  Transmission Date: 20120825
  Serious: Yes (Other)
  Sender: FDA-Public Use
  Company Number: CA-GLAXOSMITHKLINE-A0980306A

PATIENT
  Sex: Female
  Weight: 71.8 kg

DRUGS (7)
  1. ASPIRIN [Concomitant]
  2. CANDESARTAN CILEXETIL [Concomitant]
  3. VITAMIN E [Concomitant]
  4. FISH OIL [Concomitant]
  5. PANTOPRAZOLE [Concomitant]
  6. ADVAIR DISKUS 100/50 [Suspect]
     Indication: COUGH
     Dosage: 2PUFF PER DAY
     Route: 055
     Dates: start: 20120101
  7. ALLERGY MEDICATION [Concomitant]

REACTIONS (1)
  - VITREOUS DETACHMENT [None]
